FAERS Safety Report 4345247-8 (Version None)
Quarter: 2004Q2

REPORT INFORMATION
  Report Type: 
  Country: None (occurrence: None)
  Receive Date: 20040422
  Receipt Date: 20040422
  Transmission Date: 20050107
  Serious: Yes (Death)
  Sender: FDA-Public Use
  Company Number: None

PATIENT
  Age: 18 Year
  Sex: Male
  Weight: 81.6475 kg

DRUGS (2)
  1. LEXAPRO [Suspect]
     Indication: ANXIETY
     Dosage: 1 PILL DAILY ORAL
     Route: 048
     Dates: start: 20030508, end: 20030717
  2. LEXAPRO [Suspect]
     Indication: DEPRESSION
     Dosage: 1 PILL DAILY ORAL
     Route: 048
     Dates: start: 20030508, end: 20030717

REACTIONS (3)
  - AKATHISIA [None]
  - COMPLETED SUICIDE [None]
  - FEAR [None]
